FAERS Safety Report 9818811 (Version 1)
Quarter: 2013Q4

REPORT INFORMATION
  Report Type: Spontaneous
  Country: US (occurrence: None)
  Receive Date: 20131223
  Receipt Date: 20131223
  Transmission Date: 20140711
  Serious: No
  Sender: FDA-Public Use
  Company Number: 222469

PATIENT
  Age: 70 Year
  Sex: Male

DRUGS (1)
  1. PICATO [Suspect]
     Indication: PRECANCEROUS CELLS PRESENT
     Dates: start: 20130622

REACTIONS (5)
  - Application site dryness [None]
  - Application site papules [None]
  - Application site erythema [None]
  - Application site pain [None]
  - Inappropriate schedule of drug administration [None]
